FAERS Safety Report 17183214 (Version 1)
Quarter: 2019Q4

REPORT INFORMATION
  Report Type: Report from Study
  Country: US (occurrence: US)
  Receive Date: 20191220
  Receipt Date: 20191220
  Transmission Date: 20200122
  Serious: Yes (Death)
  Sender: FDA-Public Use
  Company Number: US-BAUSCH-BL-2019-065370

PATIENT
  Sex: Female

DRUGS (2)
  1. SILIQ [Suspect]
     Active Substance: BRODALUMAB
     Indication: PSORIASIS
     Dosage: WEEKLY
     Route: 058
  2. SILIQ [Suspect]
     Active Substance: BRODALUMAB
     Dosage: THEN EVERY 2 WEEKS THEREAFTER
     Route: 058

REACTIONS (1)
  - Death [Fatal]
